FAERS Safety Report 6260917-2 (Version None)
Quarter: 2009Q3

REPORT INFORMATION
  Report Type: 
  Country: None (occurrence: None)
  Receive Date: 20090709
  Receipt Date: 20090626
  Transmission Date: 20100115
  Serious: Yes (Hospitalization)
  Sender: FDA-Public Use
  Company Number: IT-B.I. PHARMACEUTICALS,INC./RIDGEFIELD-2009-IT-00155IT

PATIENT
  Sex: Female

DRUGS (7)
  1. CATAPRESAN TTS [Suspect]
     Indication: HYPERTENSION
     Route: 062
     Dates: start: 20090207, end: 20090520
  2. TRIATEC [Suspect]
     Indication: HYPERTENSION
     Route: 048
     Dates: start: 20090207, end: 20090520
  3. ALDOMET [Suspect]
     Indication: HYPERTENSION
     Dosage: 500 MG
     Route: 048
     Dates: start: 20090207, end: 20090520
  4. LASIX [Suspect]
     Indication: HYPERTENSION
     Dosage: 50 MG
     Route: 048
     Dates: start: 20090207, end: 20090520
  5. CARDURA [Suspect]
     Indication: HYPERTENSION
     Dosage: 4 MG
     Route: 048
     Dates: start: 20090207
  6. EUTIROX [Concomitant]
     Indication: HYPOTHYROIDISM
  7. HUMALOG [Concomitant]
     Indication: DIABETES MELLITUS

REACTIONS (1)
  - HYPOTENSION [None]
